FAERS Safety Report 4817996-6 (Version None)
Quarter: 2005Q4

REPORT INFORMATION
  Report Type: 
  Country: None (occurrence: None)
  Receive Date: 20051102
  Receipt Date: 20050929
  Transmission Date: 20060501
  Serious: Yes (Other)
  Sender: FDA-Public Use
  Company Number: FR-ROCHE-419492

PATIENT
  Age: 76 Year
  Sex: Female

DRUGS (6)
  1. XELODA [Suspect]
     Route: 048
     Dates: start: 20050105, end: 20050920
  2. LYTOS [Concomitant]
     Indication: BREAST CANCER
     Route: 048
     Dates: start: 20020510, end: 20030815
  3. AROMASINE [Concomitant]
     Indication: BREAST CANCER
     Route: 048
     Dates: start: 20030815, end: 20031015
  4. ARIMIDEX [Concomitant]
     Indication: BREAST CANCER
     Route: 048
     Dates: start: 20020510, end: 20030815
  5. NOLVADEX [Concomitant]
     Indication: BREAST CANCER
     Route: 048
     Dates: start: 20031015, end: 20040915
  6. EPREX [Concomitant]
     Dosage: DOSING REGIMEN REPORTED AS 40000 A WEEK.
     Route: 042
     Dates: start: 20050405, end: 20050927

REACTIONS (1)
  - ACUTE LEUKAEMIA [None]
